FAERS Safety Report 5376186-1 (Version None)
Quarter: 2007Q3

REPORT INFORMATION
  Report Type: 
  Country: None (occurrence: None)
  Receive Date: 20070702
  Receipt Date: 20070619
  Transmission Date: 20080115
  Serious: Yes (Hospitalization)
  Sender: FDA-Public Use
  Company Number: CZ-AMGEN-UK216721

PATIENT
  Sex: Male

DRUGS (18)
  1. PANITUMUMAB [Suspect]
     Indication: COLORECTAL CANCER
     Route: 042
     Dates: start: 20061106, end: 20070423
  2. KYTRIL [Concomitant]
     Route: 042
     Dates: start: 20061106
  3. ZOFRAN [Concomitant]
     Route: 048
     Dates: start: 20061107, end: 20061107
  4. NITRENDIPINE [Concomitant]
     Route: 048
     Dates: start: 20061025, end: 20061108
  5. ALLOPURINOL [Concomitant]
     Route: 048
  6. HYDROCHLOROTHIAZIDE [Concomitant]
     Route: 048
     Dates: end: 20070216
  7. MEGACE [Concomitant]
     Route: 048
     Dates: start: 20061025
  8. ALPRAZOLAM [Concomitant]
     Route: 048
     Dates: start: 20061108, end: 20061120
  9. ERYTHROMYCIN [Concomitant]
     Route: 061
     Dates: start: 20070117
  10. POTASSIUM ACETATE [Concomitant]
     Route: 048
     Dates: start: 20070117
  11. SODIUM CHLORIDE [Concomitant]
     Route: 042
     Dates: start: 20070131
  12. GLUCOSE [Concomitant]
     Route: 042
     Dates: start: 20070131, end: 20070201
  13. TORECAN [Concomitant]
     Route: 042
     Dates: start: 20070201, end: 20070215
  14. METOCLOPRAMIDE [Concomitant]
     Route: 042
     Dates: start: 20070215, end: 20070215
  15. AMOXICILLIN AND CLAVULANATE POTASSIUM [Concomitant]
     Route: 048
     Dates: start: 20070323, end: 20070330
  16. GLICLAZIDE [Concomitant]
     Route: 048
     Dates: start: 20070316
  17. DICLOFENAC [Concomitant]
     Route: 030
     Dates: start: 20070316
  18. NEUPOGEN [Concomitant]
     Route: 058
     Dates: start: 20070316, end: 20070316

REACTIONS (1)
  - VENOUS THROMBOSIS [None]
